FAERS Safety Report 5848410-X (Version None)
Quarter: 2008Q3

REPORT INFORMATION
  Report Type: 
  Country: None (occurrence: None)
  Receive Date: 20080814
  Receipt Date: 20080730
  Transmission Date: 20090109
  Serious: Yes (Life-Threatening, Hospitalization, Other)
  Sender: FDA-Public Use
  Company Number: DSU-2008-01094

PATIENT
  Age: 56 Year
  Sex: Female

DRUGS (5)
  1. OLMESARTAN MEDOXOMIL [Suspect]
     Indication: HYPERTENSION
     Dosage: 40 MG (20 MG, BID) PER ORAL
     Route: 048
     Dates: start: 20080301
  2. LIPITOR [Suspect]
     Indication: HYPERTENSION
     Dosage: 20 MG (20 MG, QD) PER ORAL
     Route: 048
  3. VERAPAMILO (VERAPAMIL) (VERAPAMIL) [Concomitant]
  4. PLAVIX [Concomitant]
  5. ASA (ACETYLSALICYLIC ACID) (ACETYLSALICYLIC ACID) [Concomitant]

REACTIONS (1)
  - ISCHAEMIC STROKE [None]
